FAERS Safety Report 23443842 (Version 1)
Quarter: 2024Q1

REPORT INFORMATION
  Report Type: Spontaneous
  Country: CA (occurrence: None)
  Receive Date: 20240125
  Receipt Date: 20240125
  Transmission Date: 20240409
  Serious: Yes (Other)
  Sender: FDA-Public Use
  Company Number: CA-PFIZER INC-202400021425

PATIENT
  Sex: Female
  Weight: 65 kg

DRUGS (3)
  1. METHOTREXATE [Suspect]
     Active Substance: METHOTREXATE
     Indication: Crohn^s disease
  2. AZATHIOPRINE SODIUM [Suspect]
     Active Substance: AZATHIOPRINE SODIUM
     Indication: Crohn^s disease
  3. HUMIRA [Suspect]
     Active Substance: ADALIMUMAB
     Indication: Crohn^s disease

REACTIONS (6)
  - Drug ineffective for unapproved indication [Not Recovered/Not Resolved]
  - Colitis ulcerative [Not Recovered/Not Resolved]
  - Inflammation [Not Recovered/Not Resolved]
  - Intestinal anastomosis [Not Recovered/Not Resolved]
  - Rash [Not Recovered/Not Resolved]
  - Product use in unapproved indication [Unknown]
